FAERS Safety Report 19212214 (Version 1)
Quarter: 2021Q2

REPORT INFORMATION
  Report Type: Spontaneous
  Country: US (occurrence: US)
  Receive Date: 20210504
  Receipt Date: 20210504
  Transmission Date: 20210717
  Serious: Yes (Life-Threatening, Hospitalization)
  Sender: FDA-Public Use
  Company Number: None

PATIENT
  Age: 66 Year
  Sex: Male
  Weight: 85.95 kg

DRUGS (7)
  1. OMEGA 3 OIL [Concomitant]
  2. BAMLANIVIMAB AND ETESEVIMAB [Suspect]
     Active Substance: BAMLANIVIMAB\ETESEVIMAB
     Indication: SARS-COV-2 TEST POSITIVE
     Dosage: ?          OTHER FREQUENCY:ONE TRANSFUSION.;?
     Route: 042
     Dates: start: 20210407, end: 20210407
  3. ALBUTEROL. [Concomitant]
     Active Substance: ALBUTEROL
  4. METOPROLOL. [Concomitant]
     Active Substance: METOPROLOL
  5. EZTIMIBE [Concomitant]
  6. HYDROXYCHOROQUINE [Concomitant]
  7. VITAMIN E [Concomitant]
     Active Substance: .ALPHA.-TOCOPHEROL

REACTIONS (7)
  - Respiratory failure [None]
  - Condition aggravated [None]
  - Oxygen saturation decreased [None]
  - Pneumonia [None]
  - Dyspnoea [None]
  - Hallucination [None]
  - Feeling abnormal [None]

NARRATIVE: CASE EVENT DATE: 20210408
